FAERS Safety Report 7653081-6 (Version None)
Quarter: 2011Q3

REPORT INFORMATION
  Report Type: 
  Country: None (occurrence: None)
  Receive Date: 20110803
  Receipt Date: 20110729
  Transmission Date: 20111222
  Serious: Yes (Hospitalization)
  Sender: FDA-Public Use
  Company Number: US-BRACCO-006570

PATIENT
  Sex: Male
  Weight: 100 kg

DRUGS (2)
  1. MULTIHANCE [Suspect]
     Indication: SPINAL FUSION SURGERY
     Route: 042
     Dates: start: 20110729, end: 20110729
  2. MULTIHANCE [Suspect]
     Indication: NUCLEAR MAGNETIC RESONANCE IMAGING
     Route: 042
     Dates: start: 20110729, end: 20110729

REACTIONS (1)
  - CARDIO-RESPIRATORY ARREST [None]
